FAERS Safety Report 24682103 (Version 2)
Quarter: 2025Q3

REPORT INFORMATION
  Report Type: Spontaneous
  Country: GB (occurrence: GB)
  Receive Date: 20241130
  Receipt Date: 20250803
  Transmission Date: 20251021
  Serious: Yes (Hospitalization, Other)
  Sender: ALEXION PHARMACEUTICALS
  Company Number: None

PATIENT
  Age: 32 Year
  Sex: Female

DRUGS (12)
  1. BENRALIZUMAB [Suspect]
     Active Substance: BENRALIZUMAB
     Route: 065
  2. CODEINE [Suspect]
     Active Substance: CODEINE
  3. SERTRALINE [Concomitant]
     Active Substance: SERTRALINE HYDROCHLORIDE
  4. LEVOTHYROXINE [Concomitant]
     Active Substance: LEVOTHYROXINE
     Dosage: MORNING
     Dates: end: 20241108
  5. LANSOPRAZOLE [Concomitant]
     Active Substance: LANSOPRAZOLE
     Dosage: MORNING
  6. HYDROCORTISONE [Concomitant]
     Active Substance: HYDROCORTISONE
  7. FOLIC ACID [Concomitant]
     Active Substance: FOLIC ACID
  8. ZOPICLONE [Concomitant]
     Active Substance: ZOPICLONE
  9. SOLIFENACIN [Concomitant]
     Active Substance: SOLIFENACIN
  10. ONDANSETRON [Concomitant]
     Active Substance: ONDANSETRON
  11. BECLOMETHASONE\FORMOTEROL [Concomitant]
     Active Substance: BECLOMETHASONE\FORMOTEROL
     Dosage: 200 / 6 MICROGRAMS / DOSE INHALERPUFFS
  12. ACETAMINOPHEN [Concomitant]
     Active Substance: ACETAMINOPHEN

REACTIONS (1)
  - Asthma [Recovered/Resolved]

NARRATIVE: CASE EVENT DATE: 20240724
